FAERS Safety Report 4644923-7 (Version None)
Quarter: 2005Q2

REPORT INFORMATION
  Report Type: 
  Country: None (occurrence: None)
  Receive Date: 20050426
  Receipt Date: 20040920
  Transmission Date: 20051028
  Serious: Yes (Other)
  Sender: FDA-Public Use
  Company Number: DE-NOVOPROD-239406

PATIENT
  Age: 52 Year
  Sex: Male
  Weight: 83 kg

DRUGS (6)
  1. NOVORAPID [Suspect]
     Indication: DIABETES MELLITUS INSULIN-DEPENDENT
     Dosage: 20 IU, QD
     Route: 058
     Dates: start: 20010801, end: 20040801
  2. LANTUS [Concomitant]
     Dosage: 20 IU, QD
     Route: 058
     Dates: start: 20010801, end: 20031201
  3. H-TRONIN [Concomitant]
     Route: 058
     Dates: start: 19980101
  4. HYPURIN BOVINE LENTE [Concomitant]
     Dates: start: 20000501
  5. SEMILENTE? MC(P) [Concomitant]
     Dates: start: 20000101, end: 20010801
  6. PROTAPHANE [Concomitant]
     Dates: start: 20031201

REACTIONS (1)
  - DIABETIC RETINOPATHY [None]
